FAERS Safety Report 13066655 (Version 2)
Quarter: 2017Q1

REPORT INFORMATION
  Report Type: Spontaneous
  Country: DE (occurrence: DE)
  Receive Date: 20161227
  Receipt Date: 20170102
  Transmission Date: 20170428
  Serious: Yes (Hospitalization, Other)
  Sender: FDA-Public Use
  Company Number: DE-TEVA-722463ROM

PATIENT
  Age: 60 Year
  Sex: Female

DRUGS (7)
  1. ATEZOLIZUMAB [Suspect]
     Active Substance: ATEZOLIZUMAB
     Indication: NON-SMALL CELL LUNG CANCER STAGE IV
     Dosage: 1200 MILLIGRAM DAILY;
     Route: 042
     Dates: start: 20160921
  2. CARBOPLATIN. [Suspect]
     Active Substance: CARBOPLATIN
     Indication: NON-SMALL CELL LUNG CANCER STAGE IV
     Route: 042
     Dates: start: 20160921, end: 20160921
  3. CARBOPLATIN. [Suspect]
     Active Substance: CARBOPLATIN
     Dosage: 800 MILLIGRAM DAILY;
     Route: 042
     Dates: start: 20161103, end: 20161103
  4. PACLITAXEL. [Suspect]
     Active Substance: PACLITAXEL
     Indication: NON-SMALL CELL LUNG CANCER STAGE IV
     Dosage: 200 MG/M2 DAILY;
     Route: 042
     Dates: start: 20160921, end: 20160921
  5. PACLITAXEL. [Suspect]
     Active Substance: PACLITAXEL
     Dosage: 380 MILLIGRAM DAILY;
     Route: 042
     Dates: start: 20161124, end: 20161124
  6. CARBOPLATIN. [Suspect]
     Active Substance: CARBOPLATIN
     Dosage: 630 MILLIGRAM DAILY;
     Route: 042
     Dates: start: 20161124, end: 20161124
  7. PACLITAXEL. [Suspect]
     Active Substance: PACLITAXEL
     Dosage: 396 MILLIGRAM DAILY;
     Route: 042
     Dates: start: 20161103, end: 20161103

REACTIONS (2)
  - Pulmonary oedema [Not Recovered/Not Resolved]
  - Acute respiratory failure [Recovered/Resolved]

NARRATIVE: CASE EVENT DATE: 20161104
